FAERS Safety Report 6070178-5 (Version None)
Quarter: 2009Q1

REPORT INFORMATION
  Report Type: 
  Country: None (occurrence: None)
  Receive Date: 20090204
  Receipt Date: 20090128
  Transmission Date: 20090719
  Serious: Yes (Death)
  Sender: FDA-Public Use
  Company Number: US025316

PATIENT
  Age: 39 Year
  Sex: Male

DRUGS (14)
  1. ACTIQ [Suspect]
     Indication: ARTHRALGIA
     Dosage: 7200 UG ONCE BUCCAL
     Route: 002
     Dates: start: 20080320, end: 20080320
  2. ACTIQ [Suspect]
     Indication: GROIN PAIN
     Dosage: 7200 UG ONCE BUCCAL
     Route: 002
     Dates: start: 20080320, end: 20080320
  3. ACTIQ [Suspect]
     Indication: ARTHRALGIA
     Dosage: 600 UG PRN BUCCAL
     Route: 002
     Dates: start: 20080315
  4. ACTIQ [Suspect]
     Indication: GROIN PAIN
     Dosage: 600 UG PRN BUCCAL
     Route: 002
     Dates: start: 20080315
  5. PARACETAMOL [Concomitant]
  6. TRAMADOL HCL [Concomitant]
  7. GABAPENTIN [Concomitant]
  8. AMLODIPINE [Concomitant]
  9. FUROSEMIDE [Concomitant]
  10. RANITIDINE [Concomitant]
  11. HYDROCORTISONE [Concomitant]
  12. THYROXINE [Concomitant]
  13. NOVORAPID [Concomitant]
  14. LEVEMIR [Concomitant]

REACTIONS (2)
  - OVERDOSE [None]
  - THERAPEUTIC AGENT TOXICITY [None]
